FAERS Safety Report 17888773 (Version 1)
Quarter: 2020Q2

REPORT INFORMATION
  Report Type: Spontaneous
  Country: US (occurrence: US)
  Receive Date: 20200611
  Receipt Date: 20200611
  Transmission Date: 20200714
  Serious: No
  Sender: FDA-Public Use
  Company Number: None

PATIENT
  Age: 37 Year
  Sex: Male

DRUGS (1)
  1. TACROLIMUS CAP 1MG [Suspect]
     Active Substance: TACROLIMUS
     Route: 048

REACTIONS (3)
  - Forced expiratory volume decreased [None]
  - Pulmonary function test decreased [None]
  - Sinus disorder [None]

NARRATIVE: CASE EVENT DATE: 20200611
